FAERS Safety Report 12631633 (Version 2)
Quarter: 2016Q3

REPORT INFORMATION
  Report Type: Spontaneous
  Country: US (occurrence: US)
  Receive Date: 20160808
  Receipt Date: 20160808
  Transmission Date: 20161109
  Serious: No
  Sender: FDA-Public Use
  Company Number: US-BEH-2015055034

PATIENT
  Sex: Male

DRUGS (1)
  1. HIZENTRA [Suspect]
     Active Substance: HUMAN IMMUNOGLOBULIN G
     Indication: IMMUNODEFICIENCY COMMON VARIABLE
     Dosage: START DATE SPRING 2015
     Route: 058

REACTIONS (6)
  - Erythema [Unknown]
  - Pruritus [Unknown]
  - Blister [Unknown]
  - Dyshidrotic eczema [Unknown]
  - Joint stiffness [Unknown]
  - Oedema [Unknown]
